FAERS Safety Report 12795095 (Version 1)
Quarter: 2016Q3

REPORT INFORMATION
  Report Type: Spontaneous
  Country: US (occurrence: US)
  Receive Date: 20160929
  Receipt Date: 20160929
  Transmission Date: 20161109
  Serious: Yes (Other)
  Sender: FDA-Public Use
  Company Number: US-ASTRAZENECA-2016SF02718

PATIENT
  Age: 68 Year
  Sex: Female
  Weight: 89 kg

DRUGS (5)
  1. MEDICATION FOR ATRIAL FIBRILLATION [Concomitant]
     Indication: ATRIAL FIBRILLATION
  2. MEDICATION FOR HIGH BLOOD PRESSURE [Concomitant]
     Active Substance: UNSPECIFIED INGREDIENT
     Indication: HYPERTENSION
  3. AROMASIN [Suspect]
     Active Substance: EXEMESTANE
     Indication: BREAST CANCER
     Route: 048
     Dates: start: 201401
  4. AROMASIN [Suspect]
     Active Substance: EXEMESTANE
     Indication: BREAST CANCER
     Route: 048
     Dates: start: 20160815
  5. ARIMIDEX [Suspect]
     Active Substance: ANASTROZOLE
     Route: 048
     Dates: start: 2003, end: 2008

REACTIONS (2)
  - Breast cancer recurrent [Unknown]
  - Cerebral disorder [Recovering/Resolving]

NARRATIVE: CASE EVENT DATE: 2014
